FAERS Safety Report 8578428 (Version 2)
Quarter: 2013Q2

REPORT INFORMATION
  Report Type: Spontaneous
  Country: BR (occurrence: BR)
  Receive Date: 20120524
  Receipt Date: 20130410
  Transmission Date: 20140414
  Serious: Yes (Other)
  Sender: FDA-Public Use
  Company Number: BR-ROCHE-453969

PATIENT
  Age: 34 Year
  Sex: Female
  Weight: 57 kg

DRUGS (15)
  1. RIVOTRIL [Suspect]
     Indication: INSOMNIA
     Dosage: OTHER INDICATION: ANXIETY/ DEPRESSION/PHOBIA, PANIC SYNDROME CRISISROUTE: SUBLINGUAL TAKEN WHEN NE+
     Route: 050
  2. RIVOTRIL [Suspect]
     Indication: ANXIETY
     Dosage: ROUTE: ORAL, STRENGTH: 2MG/TABLET
     Route: 050
  3. RIVOTRIL [Suspect]
     Route: 050
  4. ROHYPNOL [Suspect]
     Indication: INSOMNIA
     Route: 048
  5. AMPLICTIL [Concomitant]
     Indication: INSOMNIA
     Route: 048
  6. AMPLICTIL [Concomitant]
     Route: 065
  7. FENERGAN [Concomitant]
     Indication: INSOMNIA
     Route: 048
  8. SYNTHROID [Concomitant]
     Route: 048
  9. SYNTHROID [Concomitant]
     Route: 065
  10. ZOLOFT [Concomitant]
  11. NOCTAL (BRAZIL) [Concomitant]
     Indication: INSOMNIA
     Route: 048
  12. PROPRANOLOL [Concomitant]
  13. TRILEPTAL [Concomitant]
     Dosage: DOSE: HALF TABLET TWICE A DAY (ON MORNING AND NIGHT)
     Route: 065
  14. AMITRIPTILINA [Concomitant]
     Route: 065
  15. PAROXETINE [Concomitant]
     Route: 048

REACTIONS (24)
  - Suicide attempt [Unknown]
  - Hypotension [Not Recovered/Not Resolved]
  - Iron deficiency anaemia [Unknown]
  - Amnesia [Not Recovered/Not Resolved]
  - Tremor [Not Recovered/Not Resolved]
  - Arthralgia [Not Recovered/Not Resolved]
  - Hepatic pain [Not Recovered/Not Resolved]
  - Abdominal pain [Not Recovered/Not Resolved]
  - Dyspnoea [Not Recovered/Not Resolved]
  - Hyperhidrosis [Not Recovered/Not Resolved]
  - Tachycardia [Not Recovered/Not Resolved]
  - Cardiac discomfort [Not Recovered/Not Resolved]
  - Nausea [Unknown]
  - Decreased appetite [Not Recovered/Not Resolved]
  - Hypoaesthesia [Not Recovered/Not Resolved]
  - Bladder dilatation [Not Recovered/Not Resolved]
  - Platelet count abnormal [Not Recovered/Not Resolved]
  - Pain in extremity [Not Recovered/Not Resolved]
  - Chest pain [Recovered/Resolved]
  - Thrombocytopenia [Not Recovered/Not Resolved]
  - Dizziness [Unknown]
  - Arthralgia [Not Recovered/Not Resolved]
  - Somnambulism [Recovered/Resolved]
  - Euphoric mood [Unknown]
